FAERS Safety Report 16870348 (Version 1)
Quarter: 2019Q3

REPORT INFORMATION
  Report Type: Report from Study
  Country: CA (occurrence: CA)
  Receive Date: 20190930
  Receipt Date: 20190930
  Transmission Date: 20191005
  Serious: Yes (Death, Hospitalization, Disabling, Other)
  Sender: FDA-Public Use
  Company Number: CA-TEVA-2019-CA-1114556

PATIENT
  Age: 55 Year
  Sex: Female
  Weight: 78 kg

DRUGS (25)
  1. HYDROMORPHONE [Suspect]
     Active Substance: HYDROMORPHONE
     Indication: PRODUCT USED FOR UNKNOWN INDICATION
     Route: 048
  2. PANTOPRAZOLE [Concomitant]
     Active Substance: PANTOPRAZOLE
     Route: 065
  3. RANITIDINE. [Concomitant]
     Active Substance: RANITIDINE
     Dosage: 300 MILLIGRAM DAILY;
     Route: 065
  4. AMLODIPINE BESILATE [Suspect]
     Active Substance: AMLODIPINE BESYLATE
     Indication: PRODUCT USED FOR UNKNOWN INDICATION
     Route: 065
  5. BEVACIZUMAB. [Suspect]
     Active Substance: BEVACIZUMAB
     Indication: OVARIAN CANCER
     Route: 042
  6. MACROBID [Concomitant]
     Active Substance: NITROFURANTOIN\NITROFURANTOIN MONOHYDRATE
     Dosage: 200 MILLIGRAM DAILY;
     Route: 065
  7. MAXERAN [Concomitant]
     Active Substance: METOCLOPRAMIDE HYDROCHLORIDE
     Dosage: 20 MILLIGRAM DAILY;
     Route: 065
  8. SOLIFENACIN [Concomitant]
     Active Substance: SOLIFENACIN
  9. SOLIFENACIN [Concomitant]
     Active Substance: SOLIFENACIN
     Route: 065
  10. CARBOPLATIN. [Concomitant]
     Active Substance: CARBOPLATIN
     Route: 065
  11. PACLITAXEL. [Concomitant]
     Active Substance: PACLITAXEL
     Route: 065
  12. HYDROMORPHONE HYDROCHLORIDE. [Suspect]
     Active Substance: HYDROMORPHONE HYDROCHLORIDE
     Indication: PRODUCT USED FOR UNKNOWN INDICATION
     Route: 058
  13. DECADRON [Concomitant]
     Active Substance: DEXAMETHASONE
     Route: 065
  14. MAXERAN [Concomitant]
     Active Substance: METOCLOPRAMIDE HYDROCHLORIDE
     Route: 065
  15. TAXOL [Concomitant]
     Active Substance: PACLITAXEL
  16. MACROBID [CLARITHROMYCIN] [Suspect]
     Active Substance: CLARITHROMYCIN
     Indication: PRODUCT USED FOR UNKNOWN INDICATION
     Route: 065
  17. PANTOPRAZOLE [Concomitant]
     Active Substance: PANTOPRAZOLE
     Dosage: 80 MILLIGRAM DAILY;
     Route: 065
  18. RANITIDINE. [Concomitant]
     Active Substance: RANITIDINE
     Route: 065
  19. MAGNESIUM OXIDE. [Concomitant]
     Active Substance: MAGNESIUM OXIDE
     Dosage: 840 MILLIGRAM DAILY;
     Route: 048
  20. MAGNESIUM OXIDE. [Concomitant]
     Active Substance: MAGNESIUM OXIDE
     Route: 065
  21. PACLITAXEL. [Concomitant]
     Active Substance: PACLITAXEL
  22. TAXOL [Concomitant]
     Active Substance: PACLITAXEL
     Route: 065
  23. CARBOPLATIN. [Concomitant]
     Active Substance: CARBOPLATIN
  24. DECADRON [Concomitant]
     Active Substance: DEXAMETHASONE
     Dosage: 8 MILLIGRAM DAILY;
     Route: 065
  25. MACROBID [Concomitant]
     Active Substance: NITROFURANTOIN\NITROFURANTOIN MONOHYDRATE
     Route: 065

REACTIONS (26)
  - Blood count abnormal [Fatal]
  - Insomnia [Fatal]
  - Kidney infection [Fatal]
  - Nausea [Fatal]
  - Vomiting [Fatal]
  - Intestinal obstruction [Fatal]
  - Renal atrophy [Fatal]
  - Single functional kidney [Fatal]
  - Abdominal discomfort [Fatal]
  - Hypoalbuminaemia [Fatal]
  - Urinary tract infection [Fatal]
  - Abdominal pain upper [Fatal]
  - Dysuria [Fatal]
  - Neuropathy peripheral [Fatal]
  - Drug hypersensitivity [Fatal]
  - Oedema peripheral [Fatal]
  - Off label use [Fatal]
  - Blood creatinine increased [Fatal]
  - Central obesity [Fatal]
  - Proteinuria [Fatal]
  - Renal failure [Fatal]
  - Stress [Fatal]
  - Blood creatine increased [Fatal]
  - Blood potassium decreased [Fatal]
  - Ill-defined disorder [Fatal]
  - Sepsis [Fatal]
